FAERS Safety Report 17517211 (Version 2)
Quarter: 2020Q1

REPORT INFORMATION
  Report Type: Report from Study
  Country: FR (occurrence: FR)
  Receive Date: 20200309
  Receipt Date: 20200310
  Transmission Date: 20200409
  Serious: Yes (Death, Other)
  Sender: FDA-Public Use
  Company Number: FR-PFIZER INC-2020096766

PATIENT
  Age: 59 Year

DRUGS (3)
  1. ETOPOSIDE. [Concomitant]
     Active Substance: ETOPOSIDE
     Indication: METASTATIC NEOPLASM
     Dosage: 100 MG/M2, DAILY, (ON DAYS 1-5)
  2. CISPLATIN. [Concomitant]
     Active Substance: CISPLATIN
     Indication: METASTATIC NEOPLASM
     Dosage: 20 UG/M2, DAILY, (ON DAYS 1-5)
  3. FILGRASTIM [Suspect]
     Active Substance: FILGRASTIM
     Dosage: 5 UG/KG, DAILY, (FOR 8 DAYS)
     Route: 065

REACTIONS (1)
  - Cardiac failure [Fatal]
